FAERS Safety Report 4495880-8 (Version None)
Quarter: 2004Q4

REPORT INFORMATION
  Report Type: 
  Country: None (occurrence: None)
  Receive Date: 20041104
  Receipt Date: 20041021
  Transmission Date: 20050328
  Serious: Yes (Hospitalization, Other)
  Sender: FDA-Public Use
  Company Number: USA-2004-0017483

PATIENT
  Age: 48 Year
  Sex: Male
  Weight: 114.3 kg

DRUGS (10)
  1. OXYCONTIN [Suspect]
     Dosage: ORAL
     Route: 048
  2. MS CONTIN [Suspect]
     Dosage: 100 MG, BID
  3. MORPHINE SULFATE [Concomitant]
  4. AMITRIPTYLINE HCL [Concomitant]
  5. NEURONTIN [Concomitant]
  6. PAXIL [Concomitant]
  7. LIPITOR [Concomitant]
  8. NEXIUM [Concomitant]
  9. ADVIL [Concomitant]
  10. METOPROLOL/HCTZ 2.5/6.25 (HYDROCHLOROTHIAZIDE, METOPROLOL TARTRATE) [Concomitant]

REACTIONS (42)
  - ASPARTATE AMINOTRANSFERASE INCREASED [None]
  - ASPIRATION TRACHEAL [None]
  - BASE EXCESS NEGATIVE [None]
  - BLOOD ALKALINE PHOSPHATASE INCREASED [None]
  - BLOOD BICARBONATE DECREASED [None]
  - BLOOD CALCIUM DECREASED [None]
  - BLOOD CHLORIDE DECREASED [None]
  - BLOOD CREATINE PHOSPHOKINASE MB INCREASED [None]
  - BLOOD CREATININE INCREASED [None]
  - BLOOD GLUCOSE INCREASED [None]
  - BLOOD PH DECREASED [None]
  - BLOOD POTASSIUM INCREASED [None]
  - BLOOD UREA INCREASED [None]
  - BLOOD URINE PRESENT [None]
  - CHROMATURIA [None]
  - COMA [None]
  - CONVULSION [None]
  - DRUG DEPENDENCE [None]
  - DRUG SCREEN POSITIVE [None]
  - DRUG TOXICITY [None]
  - DYSPNOEA [None]
  - FEEDING TUBE COMPLICATION [None]
  - LYMPHOCYTE COUNT DECREASED [None]
  - MEDICATION ERROR [None]
  - MUSCLE CRAMP [None]
  - MUSCLE TWITCHING [None]
  - MYOGLOBIN BLOOD INCREASED [None]
  - OBSTRUCTIVE AIRWAYS DISORDER [None]
  - PCO2 DECREASED [None]
  - PCO2 INCREASED [None]
  - PERIPHERAL COLDNESS [None]
  - POLYSUBSTANCE ABUSE [None]
  - PROTEIN TOTAL INCREASED [None]
  - PROTEIN URINE [None]
  - RESPIRATORY TRACT INFECTION BACTERIAL [None]
  - RHONCHI [None]
  - SEDATION [None]
  - SINUS TACHYCARDIA [None]
  - SINUSITIS [None]
  - URINE ANALYSIS ABNORMAL [None]
  - VOMITING [None]
  - WHITE BLOOD CELL COUNT INCREASED [None]
